FAERS Safety Report 8146736-0 (Version None)
Quarter: 2012Q1

REPORT INFORMATION
  Report Type: 
  Country: None (occurrence: None)
  Receive Date: 20120217
  Receipt Date: 20110609
  Transmission Date: 20120608
  Serious: No
  Sender: FDA-Public Use
  Company Number: US-ABBOTT-11P-163-0731223-00

PATIENT
  Sex: Female
  Weight: 70.37 kg

DRUGS (1)
  1. SIMCOR [Suspect]
     Indication: PRODUCT USED FOR UNKNOWN INDICATION
     Dosage: 500MG/20MG
     Dates: start: 20110110

REACTIONS (2)
  - FEELING HOT [None]
  - COLD SWEAT [None]
